FAERS Safety Report 4704096-9 (Version None)
Quarter: 2005Q2

REPORT INFORMATION
  Report Type: 
  Country: None (occurrence: None)
  Receive Date: 20050629
  Receipt Date: 20050520
  Transmission Date: 20051028
  Serious: Yes (Life-Threatening)
  Sender: FDA-Public Use
  Company Number: ENTC2005-0142

PATIENT
  Age: 57 Year
  Sex: Female

DRUGS (13)
  1. STALEVO 100 [Suspect]
     Indication: PARKINSON'S DISEASE
     Dosage: 100/ 25/ 200 MG X 6
     Dates: start: 20040505, end: 20050510
  2. COMTESS (ENTACAPONE) [Suspect]
     Dosage: 1200 MG (200 MG, 6 IN 1 D)
  3. PREDNISOLONE [Concomitant]
  4. CABASER [Concomitant]
  5. DITROPAN [Concomitant]
  6. CAPTOL [Concomitant]
  7. ELTROXIN [Concomitant]
  8. MAGNYL [Concomitant]
  9. PENTASA [Concomitant]
  10. SINEMET [Concomitant]
  11. MANDOLGIN [Concomitant]
  12. PINEX [Concomitant]
  13. ZOFRAN [Concomitant]

REACTIONS (1)
  - CROHN'S DISEASE [None]
